FAERS Safety Report 8221771-2 (Version None)
Quarter: 2012Q1

REPORT INFORMATION
  Report Type: 
  Country: None (occurrence: None)
  Receive Date: 20120320
  Receipt Date: 20120320
  Transmission Date: 20120608
  Serious: No
  Sender: FDA-Public Use
  Company Number: None

PATIENT
  Age: 57 Year
  Sex: Male
  Weight: 70.306 kg

DRUGS (2)
  1. CIPROFLOXACIN [Suspect]
     Indication: ANTIBIOTIC PROPHYLAXIS
     Dates: start: 20110713, end: 20110713
  2. CIPROFLOXACIN [Concomitant]
     Dates: start: 20110713, end: 20110716

REACTIONS (4)
  - TENDONITIS [None]
  - ARTHRALGIA [None]
  - PRESYNCOPE [None]
  - GAIT DISTURBANCE [None]
